FAERS Safety Report 8734566 (Version 3)
Quarter: 2014Q2

REPORT INFORMATION
  Report Type: Spontaneous
  Country: US (occurrence: US)
  Receive Date: 20120821
  Receipt Date: 20140611
  Transmission Date: 20141212
  Serious: Yes (Hospitalization, Other)
  Sender: FDA-Public Use
  Company Number: US-ASTRAZENECA-2012SE56239

PATIENT
  Age: 52 Year
  Sex: Female
  Weight: 93 kg

DRUGS (18)
  1. NEXIUM [Suspect]
     Indication: GASTROOESOPHAGEAL REFLUX DISEASE
     Route: 048
     Dates: start: 2010, end: 20140601
  2. CRESTOR [Suspect]
     Indication: BLOOD CHOLESTEROL ABNORMAL
     Route: 048
     Dates: start: 201107, end: 20140601
  3. NIACIN [Concomitant]
     Indication: FLUSHING
     Route: 048
     Dates: start: 2013
  4. ASPIRIN [Concomitant]
     Indication: CARDIAC DISORDER
     Route: 048
     Dates: start: 2011
  5. COZAR [Concomitant]
     Indication: BLOOD PRESSURE
     Route: 048
     Dates: start: 2011
  6. EFFIENT [Concomitant]
     Indication: ANTIPLATELET THERAPY
     Route: 048
     Dates: start: 2011
  7. ISOSORBIDE [Concomitant]
     Indication: BLOOD PRESSURE
     Route: 048
     Dates: start: 2011
  8. METOPROLOL TARTRATE [Concomitant]
     Route: 048
     Dates: start: 2011
  9. ZOLOFT [Concomitant]
     Indication: DEPRESSION
     Route: 048
     Dates: start: 2012
  10. ZOLOFT [Concomitant]
     Indication: ANXIETY
     Route: 048
     Dates: start: 2012
  11. LASIX [Concomitant]
     Indication: FLUID RETENTION
     Route: 048
     Dates: start: 2011
  12. XANAX [Concomitant]
     Indication: ANXIETY
     Route: 048
     Dates: start: 2011
  13. COLACE [Concomitant]
     Indication: FAECES HARD
     Route: 048
     Dates: start: 2011
  14. GABAPENTIN [Concomitant]
     Indication: NEUROPATHY PERIPHERAL
     Route: 048
     Dates: start: 201312
  15. HYDRONORCO [Concomitant]
     Indication: PAIN
     Dosage: 7.5 QID
     Route: 048
     Dates: start: 2012
  16. IBUPROFEN [Concomitant]
     Indication: HEADACHE
     Dosage: 800 MG TID PRN
     Route: 048
     Dates: start: 2012
  17. NOVOLOG 70-30 [Concomitant]
     Indication: DIABETES MELLITUS
     Route: 058
     Dates: start: 2011
  18. METFORMIN [Concomitant]
     Indication: DIABETES MELLITUS
     Route: 048
     Dates: start: 2013

REACTIONS (11)
  - Myocardial infarction [Unknown]
  - Ankle fracture [Unknown]
  - Dyspepsia [Unknown]
  - Osteoarthritis [Not Recovered/Not Resolved]
  - Sciatic nerve neuropathy [Not Recovered/Not Resolved]
  - Diabetes mellitus [Not Recovered/Not Resolved]
  - Hypertension [Not Recovered/Not Resolved]
  - Coronary artery disease [Unknown]
  - Chest pain [Unknown]
  - Intentional product misuse [Unknown]
  - Drug dose omission [Unknown]
